FAERS Safety Report 20567388 (Version 2)
Quarter: 2022Q2

REPORT INFORMATION
  Report Type: Other
  Country: US (occurrence: None)
  Receive Date: 20220308
  Receipt Date: 20220408
  Transmission Date: 20220721
  Serious: Yes (Hospitalization)
  Sender: FDA-Public Use
  Company Number: US-ROCHE-3039895

PATIENT
  Age: 64 Year
  Sex: Female

DRUGS (1)
  1. OCREVUS [Suspect]
     Active Substance: OCRELIZUMAB
     Indication: Multiple sclerosis
     Route: 065
     Dates: start: 20180824

REACTIONS (4)
  - Syncope [Recovered/Resolved]
  - Wrist fracture [Not Recovered/Not Resolved]
  - COVID-19 [Recovered/Resolved]
  - Alopecia [Not Recovered/Not Resolved]

NARRATIVE: CASE EVENT DATE: 20211203
